FAERS Safety Report 22270722 (Version 2)
Quarter: 2023Q2

REPORT INFORMATION
  Report Type: Report from Study
  Country: CA (occurrence: CA)
  Receive Date: 20230501
  Receipt Date: 20230509
  Transmission Date: 20230721
  Serious: Yes (Other)
  Sender: FDA-Public Use
  Company Number: CA-HLS-202300980

PATIENT
  Age: 26 Year
  Sex: Male

DRUGS (7)
  1. CLOZARIL [Suspect]
     Active Substance: CLOZAPINE
     Indication: Product used for unknown indication
     Dosage: AT BEDTIME
     Route: 048
     Dates: start: 20230303
  2. RIBOFLAVIN [Concomitant]
     Active Substance: RIBOFLAVIN
     Indication: Product used for unknown indication
     Route: 048
  3. VALPROIC ACID [Concomitant]
     Active Substance: VALPROIC ACID
     Indication: Product used for unknown indication
     Dosage: AT BEDTIME
     Route: 048
  4. Methadone HCI [Concomitant]
     Indication: Product used for unknown indication
     Dosage: 5 MG AT 15:00HRS AND 7.5 MG TWICE DAILY
     Route: 048
  5. Hydrocorisone [Concomitant]
     Indication: Product used for unknown indication
     Dosage: 5 MG PO 12:30 +17:00HRS AND 10 MG 08:00HRS
     Route: 048
  6. POLYETHYLENE GLYCOL [Concomitant]
     Active Substance: POLYETHYLENE GLYCOL
     Indication: Product used for unknown indication
     Route: 048
  7. FLUDROCORTISONE [Concomitant]
     Active Substance: FLUDROCORTISONE
     Indication: Product used for unknown indication
     Route: 048

REACTIONS (11)
  - C-reactive protein increased [Unknown]
  - Haematocrit decreased [Unknown]
  - Haemoglobin decreased [Unknown]
  - Myocardial infarction [Unknown]
  - Left ventricular hypertrophy [Unknown]
  - Defect conduction intraventricular [Unknown]
  - Electrocardiogram ST segment abnormal [Unknown]
  - Electrocardiogram QT prolonged [Unknown]
  - Red blood cell count decreased [Unknown]
  - Right atrial enlargement [Unknown]
  - Sinus tachycardia [Unknown]

NARRATIVE: CASE EVENT DATE: 20230310
